FAERS Safety Report 15386671 (Version 2)
Quarter: 2021Q1

REPORT INFORMATION
  Report Type: Spontaneous
  Country: JP (occurrence: JP)
  Receive Date: 20180914
  Receipt Date: 20210301
  Transmission Date: 20210419
  Serious: Yes (Other)
  Sender: FDA-Public Use
  Company Number: JP-009507513-1809JPN001289J

PATIENT
  Age: 14 Year
  Sex: Male
  Weight: 46 kg

DRUGS (3)
  1. ESLAX INTRAVENOUS 25MG/2.5ML [Suspect]
     Active Substance: ROCURONIUM BROMIDE
     Indication: NEUROMUSCULAR BLOCKING THERAPY
     Dosage: 40 MILLIGRAM, CONCENTRATION 25 MG/2.5 ML
     Route: 042
  2. REMIFENTANIL HYDROCHLORIDE. [Concomitant]
     Active Substance: REMIFENTANIL HYDROCHLORIDE
     Dosage: 0.5 MICROGRAM PER KILOGRAM
     Route: 065
  3. PROPOFOL. [Suspect]
     Active Substance: PROPOFOL
     Dosage: 90 MILLIGRAM
     Route: 065

REACTIONS (3)
  - Hypoventilation [Unknown]
  - Tracheal stenosis [Recovering/Resolving]
  - Endotracheal intubation complication [Unknown]
